FAERS Safety Report 4451527-8 (Version None)
Quarter: 2004Q3

REPORT INFORMATION
  Report Type: 
  Country: None (occurrence: None)
  Receive Date: 20040915
  Receipt Date: 20040907
  Transmission Date: 20050211
  Serious: Yes (Death, Hospitalization)
  Sender: FDA-Public Use
  Company Number: 2003168868US

PATIENT
  Age: 12 Year
  Sex: Male
  Weight: 68 kg

DRUGS (21)
  1. SOLU-MEDROL [Suspect]
     Indication: ASTHMA
     Dosage: SEE IMAGE
     Route: 042
     Dates: start: 19970401, end: 19970401
  2. SOLU-MEDROL [Suspect]
     Indication: ASTHMA
     Dosage: SEE IMAGE
     Route: 042
     Dates: start: 19970402, end: 19970402
  3. SOLU-MEDROL [Suspect]
     Indication: ASTHMA
     Dosage: SEE IMAGE
     Route: 042
     Dates: start: 19970402, end: 19970402
  4. SOLU-MEDROL [Suspect]
     Indication: ASTHMA
     Dosage: SEE IMAGE
     Route: 042
     Dates: start: 19970403, end: 19970403
  5. SOLU-MEDROL [Suspect]
     Indication: ASTHMA
     Dosage: SEE IMAGE
     Route: 042
     Dates: start: 19970404, end: 19970404
  6. SOLU-MEDROL [Suspect]
     Indication: ASTHMA
     Dosage: SEE IMAGE
     Route: 042
     Dates: start: 19970405, end: 19970405
  7. SOLU-MEDROL [Suspect]
     Indication: ASTHMA
     Dosage: SEE IMAGE
     Route: 042
     Dates: start: 19970406, end: 19970406
  8. SOLU-MEDROL [Suspect]
     Indication: ASTHMA
     Dosage: SEE IMAGE
     Route: 042
     Dates: start: 19970407, end: 19970407
  9. SOLU-MEDROL [Suspect]
     Indication: ASTHMA
     Dosage: SEE IMAGE
     Route: 042
     Dates: start: 19970409, end: 19970409
  10. SOLU-MEDROL [Suspect]
     Indication: ASTHMA
     Dosage: SEE IMAGE
     Route: 042
     Dates: start: 19970409, end: 19970409
  11. SOLU-MEDROL [Suspect]
     Indication: ASTHMA
     Dosage: SEE IMAGE
     Route: 042
     Dates: start: 19970410, end: 19970410
  12. SOLU-MEDROL [Suspect]
     Indication: ASTHMA
     Dosage: SEE IMAGE
     Route: 042
     Dates: start: 19970410, end: 19970410
  13. SOLU-MEDROL [Suspect]
     Indication: ASTHMA
     Dosage: SEE IMAGE
     Route: 042
     Dates: start: 19970410, end: 19970410
  14. SOLU-MEDROL [Suspect]
     Indication: ASTHMA
     Dosage: SEE IMAGE
     Route: 042
     Dates: start: 19970411, end: 19970411
  15. SOLU-MEDROL [Suspect]
     Indication: ASTHMA
     Dosage: SEE IMAGE
     Route: 042
     Dates: start: 19970412, end: 19970412
  16. SOLU-MEDROL [Suspect]
     Indication: ASTHMA
     Dosage: SEE IMAGE
     Route: 042
     Dates: start: 20030405, end: 20030405
  17. SOLU-MEDROL [Suspect]
     Indication: ASTHMA
     Dosage: SEE IMAGE
     Route: 042
     Dates: start: 20030408, end: 20030408
  18. PROVENTIL [Suspect]
     Indication: ASTHMA
     Dates: start: 19970401, end: 19970401
  19. ALBUTEROL [Suspect]
     Indication: ASTHMA
     Dosage: RESPIRATORY
     Dates: start: 19970401, end: 19970401
  20. TERBUTALINE SULFATE [Suspect]
     Dates: start: 19970401, end: 19970401
  21. LASIX [Concomitant]

REACTIONS (26)
  - CARDIOGENIC SHOCK [None]
  - CONSTIPATION [None]
  - DRUG INEFFECTIVE [None]
  - GASTRIC DISORDER [None]
  - GASTRIC HAEMORRHAGE [None]
  - GASTRIC PERFORATION [None]
  - GASTROINTESTINAL NECROSIS [None]
  - GENERAL PHYSICAL HEALTH DETERIORATION [None]
  - HEPATIC INFARCTION [None]
  - HEPATIC NECROSIS [None]
  - HYPERKALAEMIA [None]
  - INCOHERENT [None]
  - INTESTINAL GANGRENE [None]
  - INTESTINAL ISCHAEMIA [None]
  - MEDICATION ERROR [None]
  - MULTI-ORGAN FAILURE [None]
  - OEDEMA [None]
  - OVERDOSE [None]
  - PANIC REACTION [None]
  - PHARMACEUTICAL PRODUCT COMPLAINT [None]
  - PLEURAL EFFUSION [None]
  - PULMONARY OEDEMA [None]
  - RENAL FAILURE ACUTE [None]
  - RENAL TUBULAR NECROSIS [None]
  - SEPTIC SHOCK [None]
  - VENTRICULAR TACHYCARDIA [None]
